FAERS Safety Report 15458632 (Version 1)
Quarter: 2018Q3

REPORT INFORMATION
  Report Type: Spontaneous
  Country: GB (occurrence: GB)
  Receive Date: 20180930
  Receipt Date: 20180930
  Transmission Date: 20181020
  Serious: Yes (Other)
  Sender: FDA-Public Use
  Company Number: None

PATIENT
  Age: 18 Year
  Sex: Male

DRUGS (3)
  1. MARIO BADESCU ACNE STARTER KIT (SALICYLIC ACID) [Suspect]
     Active Substance: SALICYLIC ACID
  2. MARIO BADESCU ACNE STARTER KIT (COSMETICS) [Suspect]
     Active Substance: COSMETICS
  3. MARIO BADESCU ACNE STARTER KIT (AVOBENZONE\HOMOSALATE\OCTINOXATE\OCTISALATE\OCTOCRYLENE\OXYBENZONE\TITANIUM DIOXIDE\ZINC OXIDE) NOS [Suspect]
     Active Substance: AVOBENZONE\HOMOSALATE\OCTINOXATE\OCTISALATE\OCTOCRYLENE\OXYBENZONE\TITANIUM DIOXIDE\ZINC OXIDE
     Indication: ACNE

REACTIONS (2)
  - Skin reaction [None]
  - Product formulation issue [None]

NARRATIVE: CASE EVENT DATE: 20180410
